FAERS Safety Report 6206195-1 (Version None)
Quarter: 2009Q2

REPORT INFORMATION
  Report Type: 
  Country: None (occurrence: None)
  Receive Date: 20090528
  Receipt Date: 20080721
  Transmission Date: 20091009
  Serious: No
  Sender: FDA-Public Use
  Company Number: US-KINGPHARMUSA00001-K200800864

PATIENT
  Sex: Female
  Weight: 68.027 kg

DRUGS (8)
  1. AVINZA [Suspect]
     Indication: SKIN DISORDER
     Dosage: 30 MG, QD
     Route: 048
     Dates: start: 20080713
  2. PREMARIN [Concomitant]
  3. SYNTHROID [Concomitant]
  4. WELLBUTRIN [Concomitant]
  5. PAXIL [Concomitant]
  6. XYZAL [Concomitant]
  7. BENICAR HCT [Concomitant]
     Dosage: UNK, UNK
  8. LORTAB [Concomitant]
     Dosage: UNK, PRN

REACTIONS (2)
  - DRUG INEFFECTIVE [None]
  - FEELING ABNORMAL [None]
